FAERS Safety Report 9933623 (Version 2)
Quarter: 2014Q1

REPORT INFORMATION
  Report Type: Report from Study
  Country: US (occurrence: US)
  Receive Date: 20140228
  Receipt Date: 20140228
  Transmission Date: 20141002
  Serious: No
  Sender: FDA-Public Use
  Company Number: US-MYLANLABS-2013S1027062

PATIENT
  Age: 64 Year
  Sex: Male
  Weight: 56 kg

DRUGS (4)
  1. AMNESTEEM CAPSULES [Suspect]
     Indication: ICHTHYOSIS
     Route: 048
     Dates: start: 20131016, end: 20131113
  2. AMNESTEEM CAPSULES [Suspect]
     Indication: OFF LABEL USE
     Route: 048
     Dates: start: 20131016, end: 20131113
  3. AMNESTEEM CAPSULES [Suspect]
     Indication: ICHTHYOSIS
     Dosage: REPORTED DOSING:   40MG DAILY, AND 40MG BID - EVERY OTHER DAY.
     Route: 048
     Dates: start: 20131016, end: 20131113
  4. AMNESTEEM CAPSULES [Suspect]
     Indication: OFF LABEL USE
     Dosage: REPORTED DOSING:   40MG DAILY, AND 40MG BID - EVERY OTHER DAY.
     Route: 048
     Dates: start: 20131016, end: 20131113

REACTIONS (2)
  - Drug ineffective for unapproved indication [Not Recovered/Not Resolved]
  - Ichthyosis [Not Recovered/Not Resolved]
